FAERS Safety Report 18350102 (Version 1)
Quarter: 2020Q4

REPORT INFORMATION
  Report Type: Spontaneous
  Country: CA (occurrence: CA)
  Receive Date: 20201006
  Receipt Date: 20201006
  Transmission Date: 20210114
  Serious: Yes (Hospitalization, Other)
  Sender: FDA-Public Use
  Company Number: CA-JNJFOC-20200945307

PATIENT
  Age: 71 Year
  Sex: Female
  Weight: 78 kg

DRUGS (4)
  1. GABAPENTIN. [Concomitant]
     Active Substance: GABAPENTIN
     Route: 065
  2. BUDESONIDE. [Concomitant]
     Active Substance: BUDESONIDE
     Route: 065
  3. INFLIXIMAB, RECOMBINANT [Suspect]
     Active Substance: INFLIXIMAB
     Indication: CROHN^S DISEASE
     Route: 042
  4. PENTASA [Concomitant]
     Active Substance: MESALAMINE
     Route: 065

REACTIONS (10)
  - Incorrect dose administered [Unknown]
  - Condition aggravated [Unknown]
  - Drug specific antibody present [Unknown]
  - Stomatitis [Unknown]
  - Mouth ulceration [Unknown]
  - Hypertension [Unknown]
  - Blood pressure fluctuation [Unknown]
  - Drug level decreased [Unknown]
  - Abdominal pain upper [Unknown]
  - Off label use [Unknown]
